FAERS Safety Report 5921914-7 (Version None)
Quarter: 2008Q4

REPORT INFORMATION
  Report Type: 
  Country: None (occurrence: None)
  Receive Date: 20081017
  Receipt Date: 20081008
  Transmission Date: 20090506
  Serious: Yes (Other)
  Sender: FDA-Public Use
  Company Number: FR-AVENTIS-200813592FR

PATIENT

DRUGS (6)
  1. LOVENOX [Suspect]
     Indication: THROMBOSIS PROPHYLAXIS
     Route: 058
     Dates: start: 20080101, end: 20080101
  2. KARDEGIC                           /00002703/ [Concomitant]
     Indication: ACUTE CORONARY SYNDROME
  3. PLAVIX [Concomitant]
     Indication: ACUTE CORONARY SYNDROME
  4. HEPARIN [Concomitant]
     Indication: ACUTE CORONARY SYNDROME
     Route: 042
  5. CONTRAST MEDIA [Concomitant]
     Indication: ARTERIOGRAM CORONARY
  6. INTEGRILIN [Concomitant]
     Indication: ACUTE CORONARY SYNDROME

REACTIONS (3)
  - CORONARY ARTERY THROMBOSIS [None]
  - DRUG INEFFECTIVE [None]
  - PRODUCT QUALITY ISSUE [None]
